FAERS Safety Report 5804118-8 (Version None)
Quarter: 2008Q3

REPORT INFORMATION
  Report Type: 
  Country: None (occurrence: None)
  Receive Date: 20080707
  Receipt Date: 20080707
  Transmission Date: 20090109
  Serious: Yes (Hospitalization, Disabling)
  Sender: FDA-Public Use
  Company Number: None

PATIENT
  Age: 65 Year
  Sex: Female

DRUGS (7)
  1. FOSAMAX [Suspect]
     Dosage: 70 MG WEEKLY ORAL
     Route: 048
  2. BONIVA [Suspect]
     Dosage: 150 MG MONTHLY ORAL
     Route: 048
  3. ZETIA [Concomitant]
  4. ASPIRIN [Concomitant]
  5. PRILOSEC [Concomitant]
  6. CLINDAMYCIN [Concomitant]
  7. PERIDEX [Concomitant]

REACTIONS (6)
  - BONE DISORDER [None]
  - ERYTHEMA [None]
  - JAW FRACTURE [None]
  - ORAL DISORDER [None]
  - PAIN IN JAW [None]
  - SWELLING [None]
